FAERS Safety Report 24010105 (Version 1)
Quarter: 2024Q2

REPORT INFORMATION
  Report Type: Spontaneous
  Country: US (occurrence: US)
  Receive Date: 20240625
  Receipt Date: 20240625
  Transmission Date: 20240715
  Serious: Yes (Other)
  Sender: FDA-Public Use
  Company Number: US-BoehringerIngelheim-2024-BI-035841

PATIENT
  Sex: Female

DRUGS (1)
  1. TRADJENTA [Suspect]
     Active Substance: LINAGLIPTIN
     Indication: Product used for unknown indication
     Dosage: 5MG
     Dates: start: 20240527

REACTIONS (8)
  - Wheezing [Unknown]
  - Ear pruritus [Unknown]
  - Throat irritation [Unknown]
  - Eye pruritus [Unknown]
  - Nasal pruritus [Unknown]
  - Myalgia [Recovered/Resolved]
  - Cough [Unknown]
  - Rhinorrhoea [Unknown]

NARRATIVE: CASE EVENT DATE: 20240603
